FAERS Safety Report 4880288-3 (Version None)
Quarter: 2006Q1

REPORT INFORMATION
  Report Type: 
  Country: None (occurrence: None)
  Receive Date: 20060113
  Receipt Date: 20060109
  Transmission Date: 20060701
  Serious: Yes (Other)
  Sender: FDA-Public Use
  Company Number: AU-ROCHE-431227

PATIENT
  Age: 60 Year
  Sex: Female
  Weight: 70 kg

DRUGS (5)
  1. CEFTRIAXONE SODIUM [Suspect]
     Indication: PROPHYLAXIS
     Route: 042
     Dates: start: 20041103, end: 20041106
  2. HEPARIN SODIUM [Suspect]
     Indication: PROPHYLAXIS
     Route: 058
     Dates: start: 20041104, end: 20041111
  3. METRONIDAZOLE [Suspect]
     Indication: PROPHYLAXIS
     Route: 042
     Dates: start: 20041104, end: 20041107
  4. METRONIDAZOLE [Suspect]
     Route: 048
     Dates: start: 20041107, end: 20041109
  5. CEPHALEXIN [Suspect]
     Indication: PROPHYLAXIS
     Route: 048
     Dates: start: 20041107, end: 20041109

REACTIONS (1)
  - HEPATITIS [None]
